FAERS Safety Report 12945848 (Version 2)
Quarter: 2016Q4

REPORT INFORMATION
  Report Type: Report from Study
  Country: IT (occurrence: IT)
  Receive Date: 20161116
  Receipt Date: 20161206
  Transmission Date: 20170207
  Serious: Yes (Hospitalization)
  Sender: FDA-Public Use
  Company Number: IT-ROCHE-1853472

PATIENT

DRUGS (4)
  1. BENDAMUSTINE [Suspect]
     Active Substance: BENDAMUSTINE
     Indication: NON-HODGKIN^S LYMPHOMA UNSPECIFIED HISTOLOGY INDOLENT
     Dosage: OVER 30-60 MIN ON DAYS 1 AND 2 OF EACH CYCLE FOR EVERY 4 WEEKS FOR UP TO 6 CYCLES
     Route: 065
  2. RITUXIMAB [Suspect]
     Active Substance: RITUXIMAB
     Indication: NON-HODGKIN^S LYMPHOMA UNSPECIFIED HISTOLOGY INDOLENT
     Dosage: ON DAY 1 OF EACH CYCLE FOR EVERY 4 WEEKS FOR UP TO 6 CYCLES
     Route: 042
  3. PEGFILGRASTIM [Suspect]
     Active Substance: PEGFILGRASTIM
     Indication: PROPHYLAXIS
     Dosage: IN A SINGLE ADMINISTRATION ON DAY 4, FROM THE FIRST COURSE OF IMMUNO-CHEMOTHERAPY
     Route: 058
  4. FILGRASTIM [Suspect]
     Active Substance: FILGRASTIM
     Indication: PROPHYLAXIS
     Dosage: FOR AT LEAST 3 DAYS
     Route: 058

REACTIONS (6)
  - Upper respiratory tract infection [Unknown]
  - Lower respiratory tract infection [Unknown]
  - Pneumonia [Recovering/Resolving]
  - Febrile neutropenia [Unknown]
  - Stomatitis [Unknown]
  - Bacteraemia [Unknown]
